FAERS Safety Report 8115376-1 (Version None)
Quarter: 2012Q1

REPORT INFORMATION
  Report Type: 
  Country: None (occurrence: None)
  Receive Date: 20120206
  Receipt Date: 20120206
  Transmission Date: 20120608
  Serious: Yes (Hospitalization, Other)
  Sender: FDA-Public Use
  Company Number: None

PATIENT
  Age: 80 Year
  Sex: Male
  Weight: 77.11 kg

DRUGS (1)
  1. DIGOXIN [Suspect]
     Indication: ATRIAL FIBRILLATION
     Dosage: 250 MICROGRAM
     Route: 048
     Dates: start: 20070101, end: 20120110

REACTIONS (9)
  - TOXICITY TO VARIOUS AGENTS [None]
  - SLEEP DISORDER [None]
  - FATIGUE [None]
  - WEIGHT DECREASED [None]
  - HEADACHE [None]
  - NAUSEA [None]
  - DIARRHOEA [None]
  - BREAST DISORDER [None]
  - DECREASED APPETITE [None]
